FAERS Safety Report 5743470-9 (Version None)
Quarter: 2008Q2

REPORT INFORMATION
  Report Type: 
  Country: None (occurrence: None)
  Receive Date: 20080519
  Receipt Date: 20080519
  Transmission Date: 20081010
  Serious: Yes (Life-Threatening, Hospitalization)
  Sender: FDA-Public Use
  Company Number: None

PATIENT
  Age: 78 Year
  Sex: Female
  Weight: 68.0396 kg

DRUGS (5)
  1. DIGITEK [Suspect]
  2. CARB/LEVO [Concomitant]
  3. DILTIAZEM [Concomitant]
  4. LIPITOR [Concomitant]
  5. WARFARIN SODIUM [Concomitant]

REACTIONS (1)
  - CARDIAC DISORDER [None]
